FAERS Safety Report 8265888-5 (Version None)
Quarter: 2012Q2

REPORT INFORMATION
  Report Type: 
  Country: None (occurrence: None)
  Receive Date: 20120406
  Receipt Date: 20120330
  Transmission Date: 20120825
  Serious: Yes (Hospitalization)
  Sender: FDA-Public Use
  Company Number: FR-GLAXOSMITHKLINE-B0792510A

PATIENT
  Sex: Male

DRUGS (6)
  1. FOSFOCINE [Suspect]
     Indication: STAPHYLOCOCCAL SEPSIS
     Dosage: 4G THREE TIMES PER DAY
     Route: 042
     Dates: start: 20120130, end: 20120210
  2. ROCEPHIN [Concomitant]
     Indication: URINARY TRACT INFECTION
     Route: 065
     Dates: start: 20120101
  3. RAMIPRIL [Suspect]
     Indication: HYPERTENSION
     Dosage: 5MG TWICE PER DAY
     Route: 048
     Dates: start: 20120112, end: 20120210
  4. ZANTAC [Suspect]
     Indication: PRODUCT USED FOR UNKNOWN INDICATION
     Dosage: 150MG TWICE PER DAY
     Route: 048
     Dates: start: 20120119, end: 20120210
  5. CLAFORAN [Suspect]
     Indication: STAPHYLOCOCCAL SEPSIS
     Dosage: 1G THREE TIMES PER DAY
     Route: 042
     Dates: start: 20120130, end: 20120210
  6. ATORVASTATIN [Concomitant]
     Indication: PRODUCT USED FOR UNKNOWN INDICATION
     Route: 065
     Dates: end: 20120210

REACTIONS (1)
  - NEUTROPENIA [None]
